FAERS Safety Report 5256491-X (Version None)
Quarter: 2007Q1

REPORT INFORMATION
  Report Type: 
  Country: None (occurrence: None)
  Receive Date: 20070306
  Receipt Date: 20070305
  Transmission Date: 20070707
  Serious: Yes (Hospitalization)
  Sender: FDA-Public Use
  Company Number: IT-GLAXOSMITHKLINE-B0460669A

PATIENT
  Age: 18 Year
  Sex: Male
  Weight: 58 kg

DRUGS (2)
  1. NELARABINE [Suspect]
     Dosage: 400MGM2 PER DAY
     Dates: start: 20070220, end: 20070222
  2. RADIOTHERAPY [Concomitant]
     Indication: MEDIASTINAL MASS

REACTIONS (2)
  - FACIAL PALSY [None]
  - NON-HODGKIN'S LYMPHOMA [None]
